FAERS Safety Report 6362043-0 (Version None)
Quarter: 2009Q3

REPORT INFORMATION
  Report Type: 
  Country: None (occurrence: None)
  Receive Date: 20090918
  Receipt Date: 20090904
  Transmission Date: 20100115
  Serious: Yes (Hospitalization, Other)
  Sender: FDA-Public Use
  Company Number: US-GENENTECH-287760

PATIENT
  Sex: Female
  Weight: 57 kg

DRUGS (8)
  1. TRASTUZUMAB [Suspect]
     Indication: BREAST CANCER
     Dosage: 456 MG, QD
     Route: 042
     Dates: start: 20090623, end: 20090723
  2. DOCETAXEL [Suspect]
     Indication: BREAST CANCER
     Dosage: 113.3 MG, Q3W
     Route: 042
     Dates: start: 20090625, end: 20090807
  3. CARBOPLATIN [Suspect]
     Indication: BREAST CANCER
     Dosage: 686 MG, Q3W
     Route: 042
     Dates: start: 20090625, end: 20090807
  4. AMLODIPINE [Concomitant]
     Indication: DRUG USE FOR UNKNOWN INDICATION
     Dosage: UNK
     Dates: start: 20080226
  5. SIMVASTATIN [Concomitant]
     Indication: DRUG USE FOR UNKNOWN INDICATION
     Dosage: UNK
     Dates: start: 20080311
  6. NIACIN [Concomitant]
     Indication: DRUG USE FOR UNKNOWN INDICATION
     Dosage: UNK
     Dates: start: 20090622
  7. PONSTEL [Concomitant]
     Indication: DRUG USE FOR UNKNOWN INDICATION
     Dosage: UNK
     Dates: start: 20080226
  8. TYLENOL (CAPLET) [Concomitant]
     Indication: DRUG USE FOR UNKNOWN INDICATION
     Dosage: UNK
     Dates: start: 20090722

REACTIONS (4)
  - ARTHRITIS INFECTIVE [None]
  - CARDIAC VALVE DISEASE [None]
  - ENDOCARDITIS [None]
  - SEPSIS [None]
